FAERS Safety Report 8960793 (Version 1)
Quarter: 2012Q4

REPORT INFORMATION
  Report Type: Spontaneous
  Country: US (occurrence: None)
  Receive Date: 20121211
  Receipt Date: 20121211
  Transmission Date: 20130627
  Serious: Yes (Other)
  Sender: FDA-Public Use
  Company Number: None

PATIENT
  Age: 81 Year
  Sex: Male
  Weight: 74.5 kg

DRUGS (1)
  1. TRAVOPROST [Suspect]
     Dosage: 1 drops, at bedtime, eye
     Dates: start: 20100907

REACTIONS (1)
  - Drug effect decreased [None]
